FAERS Safety Report 4629014-3 (Version None)
Quarter: 2005Q2

REPORT INFORMATION
  Report Type: 
  Country: None (occurrence: None)
  Receive Date: 20050405
  Receipt Date: 20050405
  Transmission Date: 20051028
  Serious: Yes (Life-Threatening, Other)
  Sender: FDA-Public Use
  Company Number: None

PATIENT
  Age: 48 Year
  Sex: Male
  Weight: 80.7403 kg

DRUGS (6)
  1. SEROQUEL [Suspect]
     Indication: ANXIETY
     Dosage: 20 MG 3X DAILY ORAL
     Route: 048
     Dates: start: 20050103, end: 20050120
  2. SEROQUEL [Suspect]
     Indication: DEPRESSION
     Dosage: 20 MG 3X DAILY ORAL
     Route: 048
     Dates: start: 20050103, end: 20050120
  3. SEROQUEL [Suspect]
     Indication: POST-TRAUMATIC STRESS DISORDER
     Dosage: 20 MG 3X DAILY ORAL
     Route: 048
     Dates: start: 20050103, end: 20050120
  4. SEROQUEL [Suspect]
     Indication: ANXIETY
     Dosage: 100 MG 1X DAILY ORAL
     Route: 048
     Dates: start: 20050103, end: 20050120
  5. SEROQUEL [Suspect]
     Indication: DEPRESSION
     Dosage: 100 MG 1X DAILY ORAL
     Route: 048
     Dates: start: 20050103, end: 20050120
  6. SEROQUEL [Suspect]
     Indication: POST-TRAUMATIC STRESS DISORDER
     Dosage: 100 MG 1X DAILY ORAL
     Route: 048
     Dates: start: 20050103, end: 20050120

REACTIONS (5)
  - CHEST PAIN [None]
  - DYSPNOEA [None]
  - ERYTHEMA [None]
  - FEELING ABNORMAL [None]
  - FLUSHING [None]
